FAERS Safety Report 14852034 (Version 1)
Quarter: 2018Q2

REPORT INFORMATION
  Report Type: Spontaneous
  Country: AU (occurrence: AU)
  Receive Date: 20180507
  Receipt Date: 20180507
  Transmission Date: 20180711
  Serious: Yes (Other)
  Sender: FDA-Public Use
  Company Number: PHHY2018AU076150

PATIENT
  Age: 50 Year
  Sex: Female

DRUGS (3)
  1. PEMETREXED. [Suspect]
     Active Substance: PEMETREXED
     Indication: BREAST CANCER METASTATIC
     Route: 065
  2. TAMOXIFEN [Suspect]
     Active Substance: TAMOXIFEN
     Indication: BREAST CANCER METASTATIC
     Dosage: UNK
     Route: 065
     Dates: start: 201303, end: 201711
  3. LETROZOLE. [Suspect]
     Active Substance: LETROZOLE
     Indication: BREAST CANCER METASTATIC
     Dosage: UNK
     Route: 065
     Dates: start: 201703

REACTIONS (14)
  - Condition aggravated [Unknown]
  - Carcinoembryonic antigen increased [Unknown]
  - Breast cancer metastatic [Unknown]
  - Malignant neoplasm of renal pelvis [Unknown]
  - Bladder hypertrophy [Unknown]
  - Metastases to liver [Unknown]
  - Gilbert^s syndrome [Unknown]
  - Cervix enlargement [Unknown]
  - Mass [Unknown]
  - Pollakiuria [Unknown]
  - Metastatic carcinoma of the bladder [Unknown]
  - Cervix cancer metastatic [Unknown]
  - Hepatic cirrhosis [Unknown]
  - Malignant neoplasm progression [Unknown]

NARRATIVE: CASE EVENT DATE: 201803
